FAERS Safety Report 21682657 (Version 1)
Quarter: 2022Q4

REPORT INFORMATION
  Report Type: Spontaneous
  Country: US (occurrence: US)
  Receive Date: 20221205
  Receipt Date: 20221205
  Transmission Date: 20230112
  Serious: No
  Sender: FDA-Public Use
  Company Number: US-PFIZER INC-202201346189

PATIENT
  Age: 67 Year
  Sex: Male

DRUGS (1)
  1. PAXLOVID [Suspect]
     Active Substance: NIRMATRELVIR\RITONAVIR
     Indication: COVID-19 treatment
     Dosage: UNK
     Dates: start: 20221125, end: 20221128

REACTIONS (7)
  - Pruritus [Recovering/Resolving]
  - Urticaria [Recovering/Resolving]
  - Diarrhoea [Recovering/Resolving]
  - Dysgeusia [Recovering/Resolving]
  - Chills [Recovering/Resolving]
  - Night sweats [Recovering/Resolving]
  - Fatigue [Recovering/Resolving]

NARRATIVE: CASE EVENT DATE: 20221127
